FAERS Safety Report 24731331 (Version 1)
Quarter: 2024Q4

REPORT INFORMATION
  Report Type: Spontaneous
  Country: US (occurrence: None)
  Receive Date: 20241212
  Receipt Date: 20241212
  Transmission Date: 20250115
  Serious: Yes (Hospitalization)
  Sender: Public
  Company Number: None

PATIENT
  Age: 42 Year
  Sex: Female
  Weight: 66.6 kg

DRUGS (1)
  1. EXPAREL [Suspect]
     Active Substance: BUPIVACAINE
     Indication: Postoperative care
     Dates: start: 20241206

REACTIONS (3)
  - Eye swelling [None]
  - Eye pruritus [None]
  - Swelling face [None]

NARRATIVE: CASE EVENT DATE: 20241210
